FAERS Safety Report 6862358-3 (Version None)
Quarter: 2010Q3

REPORT INFORMATION
  Report Type: 
  Country: None (occurrence: None)
  Receive Date: 20100721
  Receipt Date: 20100706
  Transmission Date: 20110219
  Serious: Yes (Hospitalization)
  Sender: FDA-Public Use
  Company Number: FR-JNJFOC-20100704750

PATIENT
  Age: 52 Year
  Sex: Female

DRUGS (2)
  1. IXPRIM [Suspect]
     Indication: PROCEDURAL PAIN
     Dosage: 37.5 + 325 MG
     Route: 048
  2. SINTROM [Concomitant]

REACTIONS (1)
  - MYOCARDIAL INFARCTION [None]
